FAERS Safety Report 5750398-7 (Version None)
Quarter: 2008Q2

REPORT INFORMATION
  Report Type: 
  Country: None (occurrence: None)
  Receive Date: 20080528
  Receipt Date: 20080516
  Transmission Date: 20081010
  Serious: Yes (Other)
  Sender: FDA-Public Use
  Company Number: CA-WYE-H04184208

PATIENT
  Sex: Female
  Weight: 124 kg

DRUGS (4)
  1. PANTOPRAZOLE SODIUM [Suspect]
     Indication: GASTROOESOPHAGEAL REFLUX DISEASE
     Route: 048
     Dates: start: 20070901, end: 20071201
  2. PANTOPRAZOLE SODIUM [Suspect]
     Route: 048
     Dates: start: 20080101, end: 20080510
  3. CALCIUM PHOSPHATE/CALCIUM SODIUM LACTATE/ERGOCALCIFEROL [Concomitant]
     Indication: OSTEOPOROSIS
     Dosage: UNKNOWN
     Dates: start: 20040101
  4. HALCION [Concomitant]
     Dosage: UNKNOWN PRN
     Route: 048

REACTIONS (2)
  - MYALGIA [None]
  - TENDONITIS [None]
